FAERS Safety Report 10159175 (Version 1)
Quarter: 2014Q2

REPORT INFORMATION
  Report Type: Spontaneous
  Country: US (occurrence: None)
  Receive Date: 20140507
  Receipt Date: 20140507
  Transmission Date: 20141212
  Serious: Yes (Other)
  Sender: FDA-Public Use
  Company Number: None

PATIENT
  Age: 57 Year
  Sex: Female
  Weight: 99.79 kg

DRUGS (6)
  1. AUBAGIO [Suspect]
     Indication: RELAPSING-REMITTING MULTIPLE SCLEROSIS
     Dates: start: 20130510
  2. BACLOFEN [Concomitant]
  3. DULOXETINE [Concomitant]
  4. BYSTOLIC [Concomitant]
  5. VESICARE [Concomitant]
  6. PREVACID [Concomitant]

REACTIONS (1)
  - Granuloma annulare [None]
